FAERS Safety Report 10475634 (Version 1)
Quarter: 2014Q3

REPORT INFORMATION
  Report Type: Spontaneous
  Country: DE (occurrence: DE)
  Receive Date: 20140925
  Receipt Date: 20140925
  Transmission Date: 20150326
  Serious: Yes (Congenital Anomaly)
  Sender: FDA-Public Use
  Company Number: DE-ASTRAZENECA-2014SE70433

PATIENT
  Sex: Female
  Weight: 3.2 kg

DRUGS (4)
  1. SEROQUEL [Suspect]
     Active Substance: QUETIAPINE FUMARATE
     Indication: DEPRESSION
     Route: 064
     Dates: start: 20120615, end: 20130326
  2. HUMALOG [Concomitant]
     Active Substance: INSULIN LISPRO
     Indication: GESTATIONAL DIABETES
     Dosage: 4 IE DAILY
     Route: 064
     Dates: start: 20130301, end: 20130326
  3. LYOGEN [Concomitant]
     Active Substance: FLUPHENAZINE
     Indication: SCHIZOPHRENIA, PARANOID TYPE
     Route: 064
  4. FOLICOMBIN [Concomitant]
     Indication: VITAMIN SUPPLEMENTATION
     Dosage: IN THIRD TRIMESTER
     Route: 064

REACTIONS (1)
  - Congenital hypothyroidism [Unknown]
